FAERS Safety Report 10283305 (Version 2)
Quarter: 2014Q3

REPORT INFORMATION
  Report Type: Spontaneous
  Country: DE (occurrence: DE)
  Receive Date: 20140708
  Receipt Date: 20140804
  Transmission Date: 20150326
  Serious: No
  Sender: FDA-Public Use
  Company Number: DE-BAYER-2014-100914

PATIENT
  Age: 22 Year
  Sex: Female

DRUGS (2)
  1. CIPROBAY [Suspect]
     Active Substance: CIPROFLOXACIN
     Indication: CYSTITIS
     Dosage: UNK
     Route: 048
     Dates: start: 2014, end: 2014
  2. JAYDESS [Suspect]
     Active Substance: LEVONORGESTREL
     Dosage: 12 MCG/24HR, CONT
     Route: 015
     Dates: start: 20140624

REACTIONS (5)
  - Cystitis [Recovering/Resolving]
  - Lymph node pain [Recovering/Resolving]
  - Drug ineffective [None]
  - Pyrexia [Recovering/Resolving]
  - Abdominal rigidity [Recovering/Resolving]

NARRATIVE: CASE EVENT DATE: 2014
